FAERS Safety Report 8300869-4 (Version None)
Quarter: 2012Q2

REPORT INFORMATION
  Report Type: 
  Country: None (occurrence: None)
  Receive Date: 20120420
  Receipt Date: 20120406
  Transmission Date: 20120825
  Serious: No
  Sender: FDA-Public Use
  Company Number: US-ENDO PHARMACEUTICALS INC.-OPER20120516

PATIENT
  Sex: Female

DRUGS (2)
  1. OPANA ER [Suspect]
     Indication: MIGRAINE
     Route: 048
     Dates: start: 20090101
  2. ACTIQ [Concomitant]
     Indication: BREAKTHROUGH PAIN

REACTIONS (1)
  - DRUG INEFFECTIVE [None]
